FAERS Safety Report 9537070 (Version 1)
Quarter: 2013Q3

REPORT INFORMATION
  Report Type: Spontaneous
  Country: US (occurrence: US)
  Receive Date: 20130919
  Receipt Date: 20130919
  Transmission Date: 20140515
  Serious: No
  Sender: FDA-Public Use
  Company Number: US-PFIZER INC-2013268880

PATIENT
  Age: 50 Year
  Sex: Male

DRUGS (1)
  1. GABAPENTIN [Suspect]
     Dosage: UNK

REACTIONS (3)
  - Drug hypersensitivity [Unknown]
  - Anger [Unknown]
  - Headache [Unknown]
